FAERS Safety Report 8272272 (Version 3)
Quarter: 2013Q3

REPORT INFORMATION
  Report Type: Report from Study
  Country: DE (occurrence: DE)
  Receive Date: 20111202
  Receipt Date: 20130809
  Transmission Date: 20140515
  Serious: Yes (Hospitalization)
  Sender: FDA-Public Use
  Company Number: DE-BRISTOL-MYERS SQUIBB COMPANY-16248544

PATIENT
  Age: 50 Year
  Sex: Female

DRUGS (9)
  1. ORENCIA [Suspect]
     Indication: RHEUMATOID ARTHRITIS
     Dates: start: 201012, end: 201012
  2. MABTHERA [Suspect]
     Dosage: 1000MG?9FEB11,12AUG11,26-JAN-2011, 22-AUG-2011, 12-MAR-2012 AND 22-OCT-2012
     Route: 042
     Dates: start: 20110126
  3. HUMIRA [Suspect]
     Dates: start: 201008, end: 201010
  4. TOCILIZUMAB [Suspect]
     Dates: start: 201010, end: 201010
  5. ACETYLSALICYLIC ACID [Concomitant]
     Dosage: 1DF:100 UNITS NOS
  6. ATACAND [Concomitant]
  7. PREDNISOLONE [Concomitant]
  8. APIDRA [Concomitant]
     Dosage: 1DF: 40-30-40 UNITS NOS
  9. INSULIN [Concomitant]
     Dosage: 1DF:46UNITS NOS

REACTIONS (2)
  - Hepatic steatosis [Not Recovered/Not Resolved]
  - Adrenal adenoma [Not Recovered/Not Resolved]
